FAERS Safety Report 6833586-8 (Version None)
Quarter: 2010Q3

REPORT INFORMATION
  Report Type: 
  Country: None (occurrence: None)
  Receive Date: 20100712
  Receipt Date: 20100629
  Transmission Date: 20110219
  Serious: Yes (Hospitalization, Other)
  Sender: FDA-Public Use
  Company Number: US-ELI_LILLY_AND_COMPANY-US201006007934

PATIENT
  Sex: Male

DRUGS (8)
  1. ZYPREXA [Suspect]
     Dosage: 20 MG, UNK
  2. ZYPREXA [Suspect]
     Dosage: 10 MG, 2/D
  3. EFFEXOR [Concomitant]
     Indication: DEPRESSION
     Dosage: 150 MG, DAILY (1/D)
     Route: 048
  4. EFFEXOR [Concomitant]
     Dosage: 225 MG, DAILY (1/D)
  5. LAMICTAL [Concomitant]
     Dosage: 75 MG, DAILY (1/D)
  6. LAMICTAL [Concomitant]
     Dosage: 200 MG, DAILY (1/D)
  7. TRILEPTAL [Concomitant]
  8. VITAMIN B-12 [Concomitant]

REACTIONS (19)
  - AGGRESSION [None]
  - AGITATION [None]
  - ANGER [None]
  - DEPRESSION [None]
  - DYSPNOEA EXERTIONAL [None]
  - EYE DISORDER [None]
  - FEELING OF DESPAIR [None]
  - HOSTILITY [None]
  - HYPOAESTHESIA [None]
  - HYPOTHYROIDISM [None]
  - INSOMNIA [None]
  - INTENTIONAL DRUG MISUSE [None]
  - IRRITABILITY [None]
  - MANIA [None]
  - MOOD ALTERED [None]
  - MUSCLE TIGHTNESS [None]
  - NERVOUSNESS [None]
  - SCHIZOPHRENIA [None]
  - WEIGHT INCREASED [None]
